FAERS Safety Report 8960518 (Version 1)
Quarter: 2012Q4

REPORT INFORMATION
  Report Type: Spontaneous
  Country: DK (occurrence: None)
  Receive Date: 20121203
  Receipt Date: 20121203
  Transmission Date: 20130627
  Serious: Yes (Other)
  Sender: FDA-Public Use
  Company Number: 2012MA013643

PATIENT

DRUGS (6)
  1. DOXAZOSIN MESYLATE [Suspect]
  2. METFORMIN [Concomitant]
  3. SIMVASTATIN [Concomitant]
  4. GLICLAZIDE [Concomitant]
  5. BENDROFLUMETHIAZIDE [Concomitant]
  6. ATENOLOL [Concomitant]

REACTIONS (14)
  - Weight increased [None]
  - Rash macular [None]
  - Asthenia [None]
  - Limb discomfort [None]
  - Anaemia [None]
  - Oedema peripheral [None]
  - Erythema [None]
  - Pain in extremity [None]
  - Myalgia [None]
  - Arthralgia [None]
  - Dyspnoea [None]
  - General physical health deterioration [None]
  - Pain [None]
  - Malaise [None]
